FAERS Safety Report 20518321 (Version 1)
Quarter: 2022Q1

REPORT INFORMATION
  Report Type: Spontaneous
  Country: ES (occurrence: ES)
  Receive Date: 20220225
  Receipt Date: 20220225
  Transmission Date: 20220424
  Serious: Yes (Hospitalization)
  Sender: FDA-Public Use
  Company Number: None

PATIENT
  Age: 82 Year
  Sex: Female

DRUGS (7)
  1. IBUPROFEN [Suspect]
     Active Substance: IBUPROFEN
     Indication: Back pain
     Dosage: UNK
     Route: 048
     Dates: start: 20200817, end: 20200907
  2. BISOPROLOL [Concomitant]
     Active Substance: BISOPROLOL
     Indication: Atrial fibrillation
     Dosage: 1.25 MG (20 TABLET)
     Route: 048
     Dates: start: 20200808
  3. DIAZEPAN PRODES [Concomitant]
     Indication: Spinal osteoarthritis
     Dosage: 5.0 MG (40 TABLET)
     Route: 048
     Dates: start: 20191025
  4. ASPIRIN [Concomitant]
     Active Substance: ASPIRIN
     Indication: Embolism
     Dosage: 100 MG (30 TABLETS (PVC-ALUMINIUM)30 TABLET)
     Route: 048
     Dates: start: 20100722
  5. AMLODIPINE BESYLATE [Concomitant]
     Active Substance: AMLODIPINE BESYLATE
     Indication: Product used for unknown indication
     Dosage: 5.0 MG
     Route: 048
     Dates: start: 20110311
  6. PITAVASTATIN CALCIUM [Concomitant]
     Active Substance: PITAVASTATIN CALCIUM
     Indication: Type IIa hyperlipidaemia
     Dosage: 2 MG (28 TABLET)
     Route: 048
     Dates: start: 20150327
  7. ALPRAZOLAM [Concomitant]
     Active Substance: ALPRAZOLAM
     Indication: Insomnia
     Dosage: 1 MG, C/24 H NOC
     Route: 048
     Dates: start: 20160826

REACTIONS (1)
  - Acute kidney injury [Recovered/Resolved]

NARRATIVE: CASE EVENT DATE: 20200906
